FAERS Safety Report 11114221 (Version 2)
Quarter: 2018Q1

REPORT INFORMATION
  Report Type: Spontaneous
  Country: US (occurrence: US)
  Receive Date: 20150514
  Receipt Date: 20180315
  Transmission Date: 20180508
  Serious: Yes (Hospitalization, Other)
  Sender: FDA-Public Use
  Company Number: US-ENDO PHARMACEUTICALS INC.-201502154

PATIENT
  Age: 60 Year
  Sex: Male
  Weight: 97.51 kg

DRUGS (2)
  1. TESTIM [Suspect]
     Active Substance: TESTOSTERONE
     Indication: HYPOGONADISM
     Dosage: 50 MG, DAILY
     Route: 062
     Dates: start: 20030306, end: 20131223
  2. ANDROGEL [Suspect]
     Active Substance: TESTOSTERONE
     Indication: HYPOGONADISM
     Dosage: UNK UNKNOWN, UNKNOWN
     Route: 065
     Dates: start: 20131224

REACTIONS (3)
  - Coronary artery disease [Unknown]
  - Acute myocardial infarction [Not Recovered/Not Resolved]
  - Pancreatitis [Unknown]

NARRATIVE: CASE EVENT DATE: 20120303
